FAERS Safety Report 9855690 (Version 3)
Quarter: 2014Q1

REPORT INFORMATION
  Report Type: Spontaneous
  Country: US (occurrence: US)
  Receive Date: 20140130
  Receipt Date: 20140304
  Transmission Date: 20141002
  Serious: Yes (Hospitalization, Other)
  Sender: FDA-Public Use
  Company Number: US-PFIZER INC-2014024585

PATIENT
  Age: 79 Year
  Sex: Male
  Weight: 72.56 kg

DRUGS (4)
  1. SUTENT [Suspect]
     Indication: METASTATIC RENAL CELL CARCINOMA
     Dosage: 50 MG, CYCLIC (QD 4WKS, OFF 2 WKS)
     Dates: start: 20140101, end: 20140115
  2. LIPITOR [Concomitant]
     Indication: HYPERCHOLESTEROLAEMIA
     Dosage: 80 MG, 1X/DAY
     Route: 048
     Dates: start: 20140117, end: 20140123
  3. LISINOPRIL [Concomitant]
     Dosage: UNK
  4. PLAVIX [Concomitant]
     Dosage: 75 MG, UNK
     Route: 048

REACTIONS (54)
  - Pyrexia [Unknown]
  - Asthenia [Unknown]
  - Tremor [Unknown]
  - Renal impairment [Unknown]
  - Nausea [Unknown]
  - Vomiting [Unknown]
  - Diarrhoea [Recovered/Resolved]
  - Renal failure acute [Recovered/Resolved]
  - Hyponatraemia [Recovered/Resolved]
  - Hypokalaemia [Unknown]
  - Anaemia [Unknown]
  - Thrombocytopenia [Recovered/Resolved]
  - Hypotension [Unknown]
  - Haematochezia [Unknown]
  - Haemorrhoids [Unknown]
  - Hiatus hernia [Unknown]
  - Gastritis [Unknown]
  - Cough [Recovered/Resolved]
  - Musculoskeletal chest pain [Recovered/Resolved]
  - Sinus bradycardia [Unknown]
  - Leukopenia [Unknown]
  - Gastrointestinal tract irritation [Unknown]
  - Decreased appetite [Recovered/Resolved]
  - Hepatic enzyme abnormal [Unknown]
  - Retching [Unknown]
  - Jaundice [Recovered/Resolved]
  - Dyspnoea [Recovered/Resolved]
  - Pallor [Unknown]
  - Hypertension [Unknown]
  - Dehydration [Recovering/Resolving]
  - Stomatitis [Unknown]
  - Dyspnoea [Recovered/Resolved]
  - Dysphagia [Unknown]
  - Wheezing [Recovered/Resolved]
  - Contusion [Unknown]
  - Abdominal distension [Unknown]
  - Scrotal swelling [Unknown]
  - Odynophagia [Unknown]
  - Oesophagitis ulcerative [Unknown]
  - Urine output decreased [Unknown]
  - Chromaturia [Unknown]
  - Cholelithiasis [Unknown]
  - Pleural effusion [Unknown]
  - Diverticulum [Unknown]
  - Rash [Unknown]
  - Arthralgia [Unknown]
  - Abdominal pain [Unknown]
  - Anal fissure [Unknown]
  - Weight decreased [Unknown]
  - Abdominal wall haematoma [Unknown]
  - Yellow skin [Unknown]
  - Oedema [Recovering/Resolving]
  - Hypotension [Unknown]
  - Hepatic lesion [Recovered/Resolved]
